FAERS Safety Report 10462500 (Version 1)
Quarter: 2014Q3

REPORT INFORMATION
  Report Type: Spontaneous
  Country: NL (occurrence: NL)
  Receive Date: 20140918
  Receipt Date: 20140918
  Transmission Date: 20150326
  Serious: Yes (Other)
  Sender: FDA-Public Use
  Company Number: PHHY2014NL119011

PATIENT
  Sex: Female

DRUGS (1)
  1. VERAPAMIL SANDOZ [Suspect]
     Active Substance: VERAPAMIL HYDROCHLORIDE
     Dosage: 80 MG, UNK

REACTIONS (5)
  - Anxiety [Unknown]
  - Dry mouth [Unknown]
  - Dysphemia [Unknown]
  - Heart rate increased [Unknown]
  - Blood pressure increased [Unknown]

NARRATIVE: CASE EVENT DATE: 20140908
